FAERS Safety Report 6802534-9 (Version None)
Quarter: 2010Q2

REPORT INFORMATION
  Report Type: 
  Country: None (occurrence: None)
  Receive Date: 20100628
  Receipt Date: 20100622
  Transmission Date: 20101027
  Serious: Yes (Life-Threatening, Hospitalization)
  Sender: FDA-Public Use
  Company Number: SE-TYCO HEALTHCARE/MALLINCKRODT-T201001249

PATIENT
  Sex: Female

DRUGS (1)
  1. OPTIRAY 350 [Suspect]
     Indication: COMPUTERISED TOMOGRAM
     Dosage: 80 ML, SINGLE
     Route: 042
     Dates: start: 20100428, end: 20100428

REACTIONS (1)
  - ANAPHYLACTIC SHOCK [None]
